FAERS Safety Report 10726031 (Version 1)
Quarter: 2015Q1

REPORT INFORMATION
  Report Type: Spontaneous
  Country: FR (occurrence: None)
  Receive Date: 20150116
  Receipt Date: 20150116
  Transmission Date: 20150721
  Serious: Yes (Hospitalization)
  Sender: FDA-Public Use
  Company Number: 2698740

PATIENT
  Age: 24 Year
  Sex: Male
  Weight: 81 kg

DRUGS (1)
  1. PAMIDRONIC ACID [Suspect]
     Active Substance: PAMIDRONIC ACID
     Indication: SKELETAL DYSPLASIA
     Dosage: 1 CYCLICAL, NOT OTHERWISE SPECIFIED
     Route: 042
     Dates: start: 20141203, end: 20141205

REACTIONS (16)
  - Heart rate increased [None]
  - Haemolysis [None]
  - Pyrexia [None]
  - Haemoglobin decreased [None]
  - Chest pain [None]
  - Influenza [None]
  - Lymphopenia [None]
  - Hypersensitivity [None]
  - Venous thrombosis limb [None]
  - Infusion related reaction [None]
  - Arthralgia [None]
  - Myalgia [None]
  - Blood bilirubin increased [None]
  - Blood pressure diastolic decreased [None]
  - Dyspnoea [None]
  - Phlebitis superficial [None]

NARRATIVE: CASE EVENT DATE: 20141204
